FAERS Safety Report 5892513-0 (Version None)
Quarter: 2008Q3

REPORT INFORMATION
  Report Type: 
  Country: None (occurrence: None)
  Receive Date: 20080919
  Receipt Date: 20080915
  Transmission Date: 20090109
  Serious: Yes (Hospitalization)
  Sender: FDA-Public Use
  Company Number: CIO08015788

PATIENT
  Age: 70 Year
  Sex: Female

DRUGS (1)
  1. VAPORUB, FORM/ VERSION (CAMPHOR 129-150, CEDAR LEAF OIL UNKNOWN UNK. C [Suspect]
     Indication: DYSPNOEA
     Dosage: INTRANASAL
     Route: 045

REACTIONS (5)
  - ECZEMA [None]
  - INCORRECT ROUTE OF DRUG ADMINISTRATION [None]
  - LUNG INFECTION [None]
  - PERICARDIAL EFFUSION [None]
  - PULMONARY OEDEMA [None]
